FAERS Safety Report 7021477-1 (Version None)
Quarter: 2010Q3

REPORT INFORMATION
  Report Type: 
  Country: None (occurrence: None)
  Receive Date: 20100928
  Receipt Date: 20100915
  Transmission Date: 20110219
  Serious: Yes (Other)
  Sender: FDA-Public Use
  Company Number: 2010SP049426

PATIENT
  Age: 76 Year
  Sex: Female
  Weight: 63.05 kg

DRUGS (12)
  1. INTEGRILIN [Suspect]
     Indication: PRODUCT USED FOR UNKNOWN INDICATION
     Dosage: 75 MG; IV
     Route: 042
     Dates: start: 20080221, end: 20080222
  2. HEPARIN [Suspect]
     Indication: PRODUCT USED FOR UNKNOWN INDICATION
  3. HEPARIN SODIUM INJECTION 0.45% SODIUM CHLORIDE IN PLASTIC CONTAINER [Suspect]
     Indication: CATHETERISATION CARDIAC
     Dosage: 25000 IU; INDRP
     Route: 041
     Dates: start: 20080221, end: 20080222
  4. ENOXAPARIN SODIUM [Suspect]
     Indication: PRODUCT USED FOR UNKNOWN INDICATION
     Dosage: 60 MG; BID; SC
     Route: 058
     Dates: start: 20080222
  5. CENTRUM [Concomitant]
  6. ASCORBIC ACID [Concomitant]
  7. CALCIUM [Concomitant]
  8. NITROGLYCERIN [Concomitant]
  9. LOPRESSOR [Concomitant]
  10. PLAVIX [Concomitant]
  11. ACETYLSALICYLIC ACID [Concomitant]
  12. MORPHINE SULFATE [Concomitant]

REACTIONS (13)
  - ABDOMINAL PAIN [None]
  - ASTHENIA [None]
  - COLLAPSE OF LUNG [None]
  - DRUG HYPERSENSITIVITY [None]
  - HEADACHE [None]
  - HEPATIC FAILURE [None]
  - OEDEMA MOUTH [None]
  - PHARYNGEAL OEDEMA [None]
  - RENAL FAILURE [None]
  - SWELLING FACE [None]
  - SYNCOPE [None]
  - THROMBOCYTOPENIA [None]
  - VOMITING [None]
